FAERS Safety Report 25420936 (Version 1)
Quarter: 2025Q2

REPORT INFORMATION
  Report Type: Report from Study
  Country: CA (occurrence: CA)
  Receive Date: 20250611
  Receipt Date: 20250611
  Transmission Date: 20250717
  Serious: Yes (Other)
  Sender: TEVA
  Company Number: CA-TEVA-VS-3339955

PATIENT
  Age: 47 Year
  Sex: Male

DRUGS (1)
  1. ZOLEDRONIC ACID [Suspect]
     Active Substance: ZOLEDRONIC ACID
     Indication: Osteoporosis
     Dosage: DOSE FORM: SOLUTION INTRAVENOUS
     Route: 065

REACTIONS (11)
  - Pain [Unknown]
  - Heart rate irregular [Unknown]
  - Feeling abnormal [Unknown]
  - Headache [Unknown]
  - Hyperhidrosis [Unknown]
  - Chest pain [Unknown]
  - Musculoskeletal stiffness [Unknown]
  - Hallucination [Unknown]
  - Nausea [Unknown]
  - Pyrexia [Unknown]
  - Pain in extremity [Unknown]
